FAERS Safety Report 4451787-3 (Version None)
Quarter: 2004Q3

REPORT INFORMATION
  Report Type: 
  Country: None (occurrence: None)
  Receive Date: 20040813
  Receipt Date: 20040525
  Transmission Date: 20050211
  Serious: Yes (Hospitalization)
  Sender: FDA-Public Use
  Company Number: S04-USA-03131-01

PATIENT
  Age: 80 Year
  Sex: Female

DRUGS (12)
  1. NAMENDA [Suspect]
     Indication: DEMENTIA ALZHEIMER'S TYPE
     Dosage: 5 MG QD PO
     Route: 048
     Dates: start: 20040420, end: 20040425
  2. LITHIUM [Concomitant]
  3. EXELON [Concomitant]
  4. SYMMETREL [Concomitant]
  5. SEROQUEL [Concomitant]
  6. ZANTAC [Concomitant]
  7. STARLIX [Concomitant]
  8. ASPIRIN [Concomitant]
  9. COLACE (DOCUSATE SODIUM) [Concomitant]
  10. MIRALAX [Concomitant]
  11. VITAMIN E [Concomitant]
  12. VITAMIN C [Concomitant]

REACTIONS (1)
  - TRANSIENT ISCHAEMIC ATTACK [None]
